FAERS Safety Report 5910837-5 (Version None)
Quarter: 2008Q4

REPORT INFORMATION
  Report Type: 
  Country: None (occurrence: None)
  Receive Date: 20081006
  Receipt Date: 20081006
  Transmission Date: 20090506
  Serious: Yes (Other)
  Sender: FDA-Public Use
  Company Number: None

PATIENT
  Sex: Female
  Weight: 61.4 kg

DRUGS (3)
  1. DOXORUBICIN HCL [Suspect]
     Indication: BREAST CANCER
     Dosage: 83.5MG
     Dates: start: 20080905, end: 20080926
  2. CYCLOPHOSPHAMIDE [Suspect]
     Indication: BREAST CANCER
     Dosage: 835MG
     Dates: start: 20080905, end: 20080926
  3. DOCETAXEL [Suspect]
     Dosage: 125MG
     Dates: start: 20080905, end: 20080926

REACTIONS (1)
  - NEUTROPHIL COUNT DECREASED [None]
